FAERS Safety Report 10142524 (Version 1)
Quarter: 2014Q2

REPORT INFORMATION
  Report Type: Spontaneous
  Country: US (occurrence: US)
  Receive Date: 20140430
  Receipt Date: 20140430
  Transmission Date: 20141212
  Serious: Yes (Death)
  Sender: FDA-Public Use
  Company Number: US-BEH-2014042333

PATIENT
  Age: 14 Month
  Sex: Female

DRUGS (8)
  1. IVIG [Suspect]
     Indication: COMBINED IMMUNODEFICIENCY
     Route: 042
  2. IVIG [Suspect]
     Indication: COMBINED IMMUNODEFICIENCY
     Route: 042
  3. ANTIBIOTICS [Suspect]
     Indication: COMBINED IMMUNODEFICIENCY
  4. ANTIBIOTICS [Suspect]
     Indication: COMBINED IMMUNODEFICIENCY
  5. ACYCLOVIR [Suspect]
     Indication: EPSTEIN-BARR VIRUS ASSOCIATED LYMPHOMA
  6. ACYCLOVIR [Suspect]
     Indication: COMBINED IMMUNODEFICIENCY
  7. RITUXIMAB [Suspect]
     Indication: COMBINED IMMUNODEFICIENCY
  8. RITUXIMAB [Suspect]
     Indication: COMBINED IMMUNODEFICIENCY

REACTIONS (1)
  - Drug ineffective [Fatal]
